FAERS Safety Report 24604883 (Version 3)
Quarter: 2025Q1

REPORT INFORMATION
  Report Type: Report from Study
  Country: CA (occurrence: CA)
  Receive Date: 20241111
  Receipt Date: 20250124
  Transmission Date: 20250409
  Serious: Yes (Other)
  Sender: OTSUKA
  Company Number: CA-OTSUKA-2023_023234

PATIENT
  Sex: Male

DRUGS (2)
  1. ARIPIPRAZOLE [Suspect]
     Active Substance: ARIPIPRAZOLE
     Indication: Schizophrenia
     Route: 030
  2. QUETIAPINE [Concomitant]
     Active Substance: QUETIAPINE
     Indication: Sleep disorder
     Route: 065

REACTIONS (12)
  - Facial asymmetry [Unknown]
  - Sleep disorder [Unknown]
  - Trismus [Unknown]
  - Akathisia [Not Recovered/Not Resolved]
  - Sleep apnoea syndrome [Unknown]
  - Memory impairment [Unknown]
  - Cough [Unknown]
  - Decreased appetite [Unknown]
  - Dizziness [Unknown]
  - Drug ineffective [Unknown]
  - Inappropriate schedule of product administration [Unknown]
  - Inability to afford medication [Unknown]
